FAERS Safety Report 4601099-X (Version None)
Quarter: 2005Q1

REPORT INFORMATION
  Report Type: 
  Country: None (occurrence: None)
  Receive Date: 20050304
  Receipt Date: 20050304
  Transmission Date: 20050727
  Serious: No
  Sender: FDA-Public Use
  Company Number: None

PATIENT
  Age: 20 Day
  Sex: Male

DRUGS (2)
  1. 0.5% PILOCARPINE NITRATE [Suspect]
     Indication: THERAPEUTIC PROCEDURE
     Dosage: PILOGEL DISC
     Dates: start: 20050224
  2. MACRODUCT COLLECTOR [Concomitant]

REACTIONS (3)
  - BURNS SECOND DEGREE [None]
  - MEDICAL DEVICE COMPLICATION [None]
  - PROCEDURAL COMPLICATION [None]
